FAERS Safety Report 19739743 (Version 4)
Quarter: 2021Q4

REPORT INFORMATION
  Report Type: Spontaneous
  Country: US (occurrence: US)
  Receive Date: 20210823
  Receipt Date: 20211025
  Transmission Date: 20220303
  Serious: Yes (Hospitalization, Disabling, Other)
  Sender: FDA-Public Use
  Company Number: US-GILEAD-2021-0544950

PATIENT
  Age: 56 Year
  Sex: Male
  Weight: 116 kg

DRUGS (6)
  1. TECARTUS [Suspect]
     Active Substance: BREXUCABTAGENE AUTOLEUCEL
     Indication: Mantle cell lymphoma
     Dosage: UNK UNK, ONCE
     Route: 042
     Dates: start: 20210621, end: 20210621
  2. VANCOMYCIN [Concomitant]
     Active Substance: VANCOMYCIN
     Dosage: UNK
     Dates: start: 20210613, end: 20210616
  3. CEFEPIME [Concomitant]
     Active Substance: CEFEPIME HYDROCHLORIDE
     Dosage: UNK
     Dates: start: 20210613, end: 20210617
  4. VALACYCLOVIR [Concomitant]
     Active Substance: VALACYCLOVIR HYDROCHLORIDE
  5. POSACONAZOLE [Concomitant]
     Active Substance: POSACONAZOLE
  6. ANAKINRA [Concomitant]
     Active Substance: ANAKINRA

REACTIONS (6)
  - Febrile neutropenia [Recovered/Resolved]
  - Immune effector cell-associated neurotoxicity syndrome [Recovered/Resolved]
  - Cytokine release syndrome [Recovered/Resolved]
  - Conjunctival haemorrhage [Unknown]
  - Hypotension [Unknown]
  - Face oedema [Unknown]

NARRATIVE: CASE EVENT DATE: 20210627
